FAERS Safety Report 10349463 (Version 1)
Quarter: 2014Q3

REPORT INFORMATION
  Report Type: Spontaneous
  Country: US (occurrence: US)
  Receive Date: 20140730
  Receipt Date: 20140730
  Transmission Date: 20150326
  Serious: Yes (Other)
  Sender: FDA-Public Use
  Company Number: US-ROCHE-1439885

PATIENT
  Sex: Female

DRUGS (8)
  1. KLONOPIN [Suspect]
     Active Substance: CLONAZEPAM
     Indication: AMNESIA
  2. NEXIUM [Concomitant]
     Active Substance: ESOMEPRAZOLE MAGNESIUM
     Indication: GASTROOESOPHAGEAL REFLUX DISEASE
  3. CLONAZEPAM. [Suspect]
     Active Substance: CLONAZEPAM
     Indication: ATTENTION DEFICIT/HYPERACTIVITY DISORDER
     Route: 065
     Dates: start: 2014
  4. KLONOPIN [Suspect]
     Active Substance: CLONAZEPAM
     Indication: ATTENTION DEFICIT/HYPERACTIVITY DISORDER
     Dosage: BID OR TID
     Route: 065
     Dates: end: 2014
  5. CLONAZEPAM. [Suspect]
     Active Substance: CLONAZEPAM
     Indication: AMNESIA
  6. KLONOPIN [Suspect]
     Active Substance: CLONAZEPAM
     Indication: APHASIA
  7. LISINOPRIL. [Concomitant]
     Active Substance: LISINOPRIL
     Indication: HYPERTENSION
  8. CLONAZEPAM. [Suspect]
     Active Substance: CLONAZEPAM
     Indication: APHASIA

REACTIONS (7)
  - Breast cancer [Recovered/Resolved]
  - Impatience [Not Recovered/Not Resolved]
  - Aphasia [Not Recovered/Not Resolved]
  - Renal cancer [Recovered/Resolved]
  - Pain in extremity [Recovered/Resolved]
  - Amnesia [Not Recovered/Not Resolved]
  - Malaise [Recovered/Resolved]
